FAERS Safety Report 8325375-2 (Version None)
Quarter: 2012Q2

REPORT INFORMATION
  Report Type: 
  Country: None (occurrence: None)
  Receive Date: 20120501
  Receipt Date: 20100414
  Transmission Date: 20120825
  Serious: No
  Sender: FDA-Public Use
  Company Number: US-TEVA-2010002213

PATIENT
  Sex: Male
  Weight: 113.5 kg

DRUGS (3)
  1. NUVIGIL [Suspect]
     Indication: SLEEP APNOEA SYNDROME
     Dosage: 250 MILLIGRAM;
     Route: 048
     Dates: start: 20091101
  2. NUVIGIL [Suspect]
     Indication: NARCOLEPSY
  3. LEXAPRO [Concomitant]
     Indication: AFFECTIVE DISORDER
     Dosage: 20 MILLIGRAM;
     Dates: start: 20040101

REACTIONS (1)
  - DRUG INEFFECTIVE [None]
